FAERS Safety Report 14371255 (Version 1)
Quarter: 2018Q1

REPORT INFORMATION
  Report Type: Spontaneous
  Country: DE (occurrence: DE)
  Receive Date: 20180110
  Receipt Date: 20180110
  Transmission Date: 20180509
  Serious: Yes (Hospitalization)
  Sender: FDA-Public Use
  Company Number: DE-AUROBINDO-AUR-APL-2015-07463

PATIENT
  Age: 14 Year
  Sex: Female
  Weight: 60 kg

DRUGS (9)
  1. ARIPIPRAZOLE TABLETS [Suspect]
     Active Substance: ARIPIPRAZOLE
     Indication: IMPULSIVE BEHAVIOUR
     Dosage: UNK
     Route: 048
     Dates: start: 20150716
  2. NOVORAPID [Concomitant]
     Active Substance: INSULIN ASPART
     Indication: TYPE 1 DIABETES MELLITUS
     Dosage: UNK ()
     Route: 065
     Dates: start: 20120102
  3. SALBUTAMOL [Concomitant]
     Active Substance: ALBUTEROL
     Indication: ASTHMA
     Dosage: ()
  4. SALBUTAMOL [Concomitant]
     Active Substance: ALBUTEROL
     Dosage: UNK, PRN ()
     Route: 065
  5. VIANI [Concomitant]
     Active Substance: FLUTICASONE PROPIONATE\SALMETEROL XINAFOATE
     Indication: ASTHMA
     Dosage: 1 DF, GGF. 1 X TGL. EIN HUB
     Route: 055
  6. CLONIDIN [Concomitant]
     Active Substance: CLONIDINE
     Indication: DRUG WITHDRAWAL SYNDROME
     Dosage: UNK ()
     Route: 065
  7. SALBUTAMOL [Concomitant]
     Active Substance: ALBUTEROL
     Dosage: UNK, PRN ()
     Route: 065
  8. CETRIZIN                           /00522801/ [Concomitant]
     Active Substance: CEFATRIZINE
     Indication: ASTHMA
     Dosage: ()
     Route: 065
  9. CETRIZIN                           /00522801/ [Concomitant]
     Active Substance: CEFATRIZINE
     Dosage: UNK ()
     Route: 065

REACTIONS (7)
  - Encephalitis [Not Recovered/Not Resolved]
  - Hypotension [Unknown]
  - Hypokalaemia [Unknown]
  - Off label use [Unknown]
  - Status epilepticus [Not Recovered/Not Resolved]
  - Seizure [Not Recovered/Not Resolved]
  - Hypoglycaemia [Unknown]

NARRATIVE: CASE EVENT DATE: 20150716
